FAERS Safety Report 11121724 (Version 1)
Quarter: 2015Q2

REPORT INFORMATION
  Report Type: Spontaneous
  Country: FR (occurrence: FR)
  Receive Date: 20150519
  Receipt Date: 20150519
  Transmission Date: 20150821
  Serious: Yes (Other)
  Sender: FDA-Public Use
  Company Number: FR-AMGEN-FRASP2015047072

PATIENT
  Age: 75 Year
  Sex: Male

DRUGS (1)
  1. NPLATE [Suspect]
     Active Substance: ROMIPLOSTIM
     Indication: THROMBOCYTOPENIA
     Dosage: 7 MUG/KG, QWK
     Route: 065
     Dates: start: 2008

REACTIONS (1)
  - Myelofibrosis [Unknown]

NARRATIVE: CASE EVENT DATE: 201505
